FAERS Safety Report 4426837-0 (Version None)
Quarter: 2004Q3

REPORT INFORMATION
  Report Type: 
  Country: None (occurrence: None)
  Receive Date: 20040816
  Receipt Date: 20040810
  Transmission Date: 20050211
  Serious: Yes (Hospitalization)
  Sender: FDA-Public Use
  Company Number: FR-GLAXOSMITHKLINE-B0342099A

PATIENT
  Age: 40 Year
  Sex: Female

DRUGS (18)
  1. FORTUM [Suspect]
     Indication: PROTEUS INFECTION
     Route: 042
     Dates: start: 20030301
  2. COLISTIN SULFATE [Suspect]
     Route: 065
  3. NEBCIN [Suspect]
     Indication: PROTEUS INFECTION
     Route: 065
     Dates: start: 20030301
  4. OMEPRAZOLE [Suspect]
     Dosage: 20MG PER DAY
     Route: 048
  5. LASIX [Suspect]
     Dosage: 40MG PER DAY
     Route: 048
  6. MAALOX [Suspect]
     Route: 048
  7. RIFADIN [Suspect]
     Indication: PROTEUS INFECTION
     Route: 065
     Dates: start: 20030301
  8. ACTRAPID [Concomitant]
     Dosage: 50UNIT PER DAY
     Route: 065
  9. INSULATARD NPH HUMAN [Concomitant]
     Dosage: 20UNIT PER DAY
     Route: 065
  10. CREON [Concomitant]
     Route: 048
  11. EUCALCIC [Concomitant]
     Route: 048
  12. UN-ALPHA [Concomitant]
     Dosage: .25MCG PER DAY
     Route: 048
  13. PREDNISONE TAB [Concomitant]
     Dosage: 20MG PER DAY
     Route: 048
  14. PROGRAF [Concomitant]
     Dosage: 3MG TWICE PER DAY
     Route: 048
  15. CELLCEPT [Concomitant]
     Dosage: 750MG PER DAY
     Route: 065
  16. VFEND [Concomitant]
     Route: 065
  17. NEORECORMON [Concomitant]
     Dosage: 3000UNIT THREE TIMES PER WEEK
     Route: 065
  18. FLUID REPLACEMENT [Concomitant]
     Dates: start: 20030811

REACTIONS (9)
  - DIALYSIS [None]
  - HAEMOTHORAX [None]
  - PARESIS [None]
  - PSEUDOMONAS INFECTION [None]
  - RENAL FAILURE ACUTE [None]
  - RENAL TUBULAR NECROSIS [None]
  - RESPIRATORY FAILURE [None]
  - SHOCK HAEMORRHAGIC [None]
  - WEIGHT INCREASED [None]
